FAERS Safety Report 5652242-5 (Version None)
Quarter: 2008Q1

REPORT INFORMATION
  Report Type: 
  Country: None (occurrence: None)
  Receive Date: 20080305
  Receipt Date: 20080212
  Transmission Date: 20080703
  Serious: No
  Sender: FDA-Public Use
  Company Number: US-BOEHRINGER INGELHEIM GMBH, GERMANY-2007-BP-24607BP

PATIENT
  Sex: Male

DRUGS (9)
  1. SPIRIVA [Suspect]
     Indication: CHRONIC OBSTRUCTIVE PULMONARY DISEASE
     Route: 055
     Dates: start: 20071001
  2. LASIX [Concomitant]
     Indication: DIURETIC THERAPY
     Route: 048
  3. GLYBURIDE [Concomitant]
     Indication: DIABETES MELLITUS
     Route: 048
  4. COREG [Concomitant]
     Indication: CARDIAC DISORDER
     Route: 048
  5. FOSINOPRIL SODIUM [Concomitant]
     Indication: BLOOD PRESSURE INCREASED
     Route: 048
  6. NAPROSYN [Concomitant]
     Indication: PAIN
     Route: 048
  7. TRAMADOL HCL [Concomitant]
     Indication: PAIN
     Route: 048
  8. SIMVASTATIN [Concomitant]
     Indication: BLOOD CHOLESTEROL INCREASED
     Route: 048
  9. PLAVIX [Concomitant]
     Indication: ANTICOAGULANT THERAPY
     Route: 048

REACTIONS (3)
  - DRY MOUTH [None]
  - DYSPNOEA [None]
  - THIRST [None]
